FAERS Safety Report 20538071 (Version 2)
Quarter: 2022Q1

REPORT INFORMATION
  Report Type: Spontaneous
  Country: US (occurrence: US)
  Receive Date: 20220302
  Receipt Date: 20220323
  Transmission Date: 20220423
  Serious: Yes (Death, Hospitalization, Other)
  Sender: FDA-Public Use
  Company Number: US-BioHaven Pharmaceuticals-2022BHV000601

PATIENT
  Age: 70 Year
  Sex: Female
  Weight: 100.79 kg

DRUGS (6)
  1. NURTEC ODT [Suspect]
     Active Substance: RIMEGEPANT SULFATE
     Indication: Migraine prophylaxis
     Dosage: PATIENT RECEIVED 4 SAMPLE TABLETS FROM HER DOCTOR AND DID NOT GET HER PRESCRIPTION FILLED YET.
     Route: 065
  2. CYMBALTA [Concomitant]
     Active Substance: DULOXETINE HYDROCHLORIDE
     Indication: Product used for unknown indication
     Route: 065
  3. ATIVAN [Concomitant]
     Active Substance: LORAZEPAM
     Indication: Product used for unknown indication
     Route: 065
  4. PRILOSEC [Concomitant]
     Active Substance: OMEPRAZOLE MAGNESIUM
     Indication: Product used for unknown indication
     Route: 065
  5. TOPAMAX [Concomitant]
     Active Substance: TOPIRAMATE
     Indication: Product used for unknown indication
     Route: 065
  6. OLMESARTAN [Concomitant]
     Active Substance: OLMESARTAN
     Indication: Product used for unknown indication
     Route: 065

REACTIONS (16)
  - Cardiac disorder [Fatal]
  - Sinus node dysfunction [Unknown]
  - Anaemia [Unknown]
  - Dizziness [Unknown]
  - Renal failure [Unknown]
  - Atrial fibrillation [Unknown]
  - Cerebrovascular accident [Unknown]
  - Gastrointestinal haemorrhage [Unknown]
  - Colitis ischaemic [Unknown]
  - Respiratory failure [Unknown]
  - Shock [Unknown]
  - Bradycardia [Unknown]
  - Haematoma [Unknown]
  - Hypotension [Unknown]
  - Feeling abnormal [Unknown]
  - Drug ineffective [Unknown]
